FAERS Safety Report 8473915-5 (Version None)
Quarter: 2012Q2

REPORT INFORMATION
  Report Type: 
  Country: None (occurrence: None)
  Receive Date: 20120628
  Receipt Date: 20120306
  Transmission Date: 20120825
  Serious: Yes (Hospitalization, Other)
  Sender: FDA-Public Use
  Company Number: US-MYLANLABS-2012S1002352

PATIENT
  Age: 67 Year
  Sex: Female

DRUGS (10)
  1. CLOZAPINE [Suspect]
     Indication: PSYCHOTIC DISORDER
     Dates: end: 20120101
  2. CLOZAPINE [Suspect]
  3. CLOZAPINE [Suspect]
  4. CLOZAPINE [Suspect]
  5. DEPAKOTE [Suspect]
     Dates: end: 20120101
  6. CLOZAPINE [Suspect]
  7. CLOZAPINE [Suspect]
     Indication: DEPRESSION
     Dates: end: 20120101
  8. CLOZAPINE [Suspect]
  9. CLOZAPINE [Suspect]
  10. CLOZAPINE [Suspect]
     Indication: BIPOLAR DISORDER
     Dates: end: 20120101

REACTIONS (2)
  - GRANULOCYTOPENIA [None]
  - LEUKOPENIA [None]
